FAERS Safety Report 25810224 (Version 1)
Quarter: 2025Q3

REPORT INFORMATION
  Report Type: Spontaneous
  Country: US (occurrence: US)
  Receive Date: 20250917
  Receipt Date: 20250917
  Transmission Date: 20251021
  Serious: Yes (Other)
  Sender: ALEMBIC
  Company Number: US-ALEMBIC PHARMACUETICALS LIMITED-2025SCAL001186

PATIENT

DRUGS (2)
  1. ACETAZOLAMIDE [Suspect]
     Active Substance: ACETAZOLAMIDE
     Indication: Idiopathic intracranial hypertension
     Route: 065
  2. TOPIRAMATE [Suspect]
     Active Substance: TOPIRAMATE
     Indication: Idiopathic intracranial hypertension
     Route: 065

REACTIONS (12)
  - Type 2 diabetes mellitus [Unknown]
  - Polyuria [Recovered/Resolved]
  - Hyperphagia [Recovered/Resolved]
  - Blood glucose increased [Recovered/Resolved]
  - Glycosylated haemoglobin increased [Recovered/Resolved]
  - Brain fog [Recovered/Resolved]
  - Fatigue [Recovered/Resolved]
  - Weight loss poor [Recovered/Resolved]
  - Acrochordon [Recovered/Resolved]
  - Secondary adrenocortical insufficiency [Unknown]
  - Cortisol decreased [Unknown]
  - Orthostatic hypotension [Recovered/Resolved]
